FAERS Safety Report 5038492-X (Version None)
Quarter: 2006Q2

REPORT INFORMATION
  Report Type: 
  Country: None (occurrence: None)
  Receive Date: 20060626
  Receipt Date: 20060626
  Transmission Date: 20061013
  Serious: Yes (Other)
  Sender: FDA-Public Use
  Company Number: None

PATIENT

DRUGS (1)
  1. LYRICA [Suspect]
     Indication: PAIN IN EXTREMITY
     Dosage: ONCE A DAY PO
     Route: 048
     Dates: start: 20060613, end: 20060615

REACTIONS (5)
  - DIPLOPIA [None]
  - FEELING DRUNK [None]
  - HEADACHE [None]
  - RASH [None]
  - VISUAL ACUITY REDUCED [None]
